FAERS Safety Report 23472126 (Version 5)
Quarter: 2024Q3

REPORT INFORMATION
  Report Type: Report from Study
  Country: US (occurrence: US)
  Receive Date: 20240202
  Receipt Date: 20240722
  Transmission Date: 20241016
  Serious: Yes (Life-Threatening, Hospitalization)
  Sender: BAUSCH AND LOMB
  Company Number: US-BAUSCH-BL-2024-001449

PATIENT
  Age: 59 Year
  Sex: Female

DRUGS (51)
  1. XIFAXAN [Suspect]
     Active Substance: RIFAXIMIN
     Indication: Hepatic encephalopathy
     Route: 065
  2. XIFAXAN [Suspect]
     Active Substance: RIFAXIMIN
     Indication: Overgrowth bacterial
     Route: 048
     Dates: start: 20230308, end: 20240105
  3. XIFAXAN [Suspect]
     Active Substance: RIFAXIMIN
     Indication: Abdominal distension
     Route: 048
     Dates: start: 20240105, end: 20240318
  4. WELLBUTRIN [Concomitant]
     Active Substance: BUPROPION HYDROCHLORIDE
     Indication: Product used for unknown indication
     Route: 048
     Dates: start: 20220727, end: 20230630
  5. WELLBUTRIN [Concomitant]
     Active Substance: BUPROPION HYDROCHLORIDE
     Route: 048
     Dates: start: 20230630, end: 20240514
  6. ANUSOL HC [Concomitant]
     Active Substance: HYDROCORTISONE
     Indication: Product used for unknown indication
     Dosage: INSERT 1 SUPPOSITORY RECTALLY TWICE DAILY
     Route: 054
     Dates: start: 20221220, end: 20231102
  7. ANUSOL HC [Concomitant]
     Active Substance: HYDROCORTISONE
     Dosage: INSERT 1 SUPPOSITORY RECTALLY TWICE DAILY
     Route: 054
     Dates: start: 20231102
  8. ANUSOL HC [Concomitant]
     Active Substance: HYDROCORTISONE
     Dosage: INSERT 1 SUPPOSITORY RECTALLY TWICE DAILY
     Route: 054
     Dates: start: 20231106, end: 20240318
  9. EPINEPHRINE [Concomitant]
     Active Substance: EPINEPHRINE
     Indication: Hypersensitivity
     Dosage: AUTOINJECTOR (0.3 MG/0.3 ML), INJECT 0.3 ML IN MUSCLE, MAY REPEAT ONCE
     Route: 030
     Dates: start: 20220720
  10. THIAMINE HYDROCHLORIDE [Concomitant]
     Active Substance: THIAMINE HYDROCHLORIDE
     Indication: Product used for unknown indication
     Dosage: DAILY
     Route: 048
     Dates: start: 20200318
  11. PROAIR HFA [Concomitant]
     Active Substance: ALBUTEROL SULFATE
     Indication: Wheezing
     Dosage: INHALE 180 MCG (2 PUFFS TOTAL) IN LUNGS EVERY 6 HOURS AS NEEDED
     Route: 055
     Dates: start: 20190823
  12. ALBUTEROL SULFATE [Concomitant]
     Active Substance: ALBUTEROL SULFATE
     Indication: Wheezing
     Dosage: 2.5 MG/3ML (0.083%) NEBULIZER SOLUTION, (2.5 MG TOTAL) EVERY 4 HOURS AS NEEDED FOR USE IN NEBULIZER
     Route: 055
     Dates: start: 20221122, end: 20231103
  13. ALBUTEROL SULFATE [Concomitant]
     Active Substance: ALBUTEROL SULFATE
     Dosage: 2.5 MG/3ML (0.083%) NEBULIZER SOLUTION, (2.5 MG TOTAL) EVERY 4 HOURS AS NEEDED FOR USE IN NEBULIZER
     Route: 055
     Dates: start: 20231106
  14. VITAMIN C [Concomitant]
     Active Substance: ASCORBIC ACID
     Indication: Product used for unknown indication
     Route: 048
     Dates: start: 20220715, end: 20230918
  15. FINACEA [Concomitant]
     Active Substance: AZELAIC ACID
     Indication: Product used for unknown indication
     Dosage: APPLY A PEA SIZE TO FACE ONCE DAILY
     Route: 061
     Dates: start: 20230107
  16. LATISSE [Concomitant]
     Active Substance: BIMATOPROST
     Indication: Product used for unknown indication
     Dosage: APPLY 1 DROP TO AFFECTED AREA AT BEDTIME APPLY TO BOTH EYELIDS AS DIRECTED
     Route: 061
     Dates: start: 20210121, end: 20230822
  17. OSCAL D [Concomitant]
     Active Substance: CALCIUM CARBONATE\CHOLECALCIFEROL
     Indication: Product used for unknown indication
     Dosage: 550/200 MG
     Route: 048
     Dates: start: 20220714
  18. VITAMIN B12 [Concomitant]
     Active Substance: CYANOCOBALAMIN
     Indication: Product used for unknown indication
     Dosage: INJECT 1 ML IN THE MUSCLE EVERY TUESDAY AND FRIDAY AS DIRECTED
     Route: 030
     Dates: start: 20210928, end: 20230822
  19. BENADRYL [Concomitant]
     Active Substance: DIPHENHYDRAMINE HYDROCHLORIDE
     Indication: Product used for unknown indication
     Dosage: TAKE 50 MG PO AT 1 HOUR PRIOR TO IV CONTRAST
     Route: 048
     Dates: start: 20210119, end: 20240318
  20. DRISDOL [Concomitant]
     Active Substance: ERGOCALCIFEROL
     Indication: Product used for unknown indication
     Route: 048
     Dates: start: 20220523
  21. ESTRACE [Concomitant]
     Active Substance: ESTRADIOL
     Indication: Product used for unknown indication
     Dosage: 0.01% (0.1 MG/GRAM), INSERT 1 G VAGINAL TWICE WEEKLY
     Route: 067
     Dates: start: 20200603, end: 20230627
  22. ESTRACE [Concomitant]
     Active Substance: ESTRADIOL
     Dosage: 0.01% (0.1 MG/GRAM), INSERT 1 G VAGINAL TWICE WEEKLY
     Route: 067
     Dates: start: 20230627
  23. LACTASE [Concomitant]
     Active Substance: LACTASE
     Indication: Product used for unknown indication
     Dosage: TAKE 3000 UNITS BY MOUTH THREE TIMES DAILY TAKE WITH LACTULOSE
     Route: 048
  24. CHRONULAC [Concomitant]
     Active Substance: LACTULOSE
     Indication: Bowel movement irregularity
     Dosage: 20 GRAM/30 ML (TAKE 30 ML 2-3 TIMES DAILY, TITRATE AS NEEDED TO HAVE 3-4 BOWEL MOVEMENTS)
     Route: 048
     Dates: start: 20221215, end: 20240116
  25. CHRONULAC [Concomitant]
     Active Substance: LACTULOSE
     Indication: Hepatic encephalopathy
     Dosage: 20 GRAM/30 ML (TAKE 30 ML 2-3 TIMES DAILY, TITRATE AS NEEDED TO HAVE 3-4 BOWEL MOVEMENTS)
     Route: 048
     Dates: start: 20240116
  26. SYNTHROID [Concomitant]
     Active Substance: LEVOTHYROXINE SODIUM
     Indication: Product used for unknown indication
     Dosage: BEFORE BREAKFAST
     Route: 048
     Dates: start: 20230215, end: 20230719
  27. SYNTHROID [Concomitant]
     Active Substance: LEVOTHYROXINE SODIUM
     Dosage: BEFORE BREAKFAST
     Route: 048
     Dates: start: 20240117
  28. ZENPEP [Concomitant]
     Active Substance: PANCRELIPASE AMYLASE\PANCRELIPASE LIPASE\PANCRELIPASE PROTEASE
     Indication: Product used for unknown indication
     Dosage: 25000-79000-105000 UNIT ORAL CPDR, TAKE 1 CAPSULE TID WITH MEALS
     Route: 048
     Dates: start: 20221122, end: 20230918
  29. ZENPEP [Concomitant]
     Active Substance: PANCRELIPASE AMYLASE\PANCRELIPASE LIPASE\PANCRELIPASE PROTEASE
     Dosage: TAKE 2-3 CAPSULE WITH EACH MEAL (3 MEALS) AND 1-2 CAPSULES WITH EACH SNACK (2 SNACK)
     Route: 048
     Dates: start: 20230609
  30. PANCRELIPASE AMYLASE\PANCRELIPASE LIPASE\PANCRELIPASE PROTEASE [Concomitant]
     Active Substance: PANCRELIPASE AMYLASE\PANCRELIPASE LIPASE\PANCRELIPASE PROTEASE
     Indication: Product used for unknown indication
     Dosage: 36000-114000-180000 UNIT ORAL CPDR, TAKE 1 CAPSULE WITH MEALS WHILE WAITING FOR ZENZEP
     Route: 048
     Dates: start: 20230412, end: 20230414
  31. MAGNESIUM [Concomitant]
     Active Substance: MAGNESIUM
     Indication: Product used for unknown indication
     Route: 048
     Dates: start: 20200605
  32. DIETARY SUPPLEMENT\HERBALS\MILK THISTLE [Concomitant]
     Active Substance: MILK THISTLE
     Indication: Product used for unknown indication
     Route: 048
     Dates: end: 20230822
  33. VITAMINS [Concomitant]
     Active Substance: VITAMINS
     Indication: Product used for unknown indication
     Route: 048
     Dates: start: 20220715
  34. ZOFRAN [Concomitant]
     Active Substance: ONDANSETRON HYDROCHLORIDE
     Indication: Nausea
     Route: 048
  35. ZOFRAN [Concomitant]
     Active Substance: ONDANSETRON HYDROCHLORIDE
     Indication: Vomiting
  36. PROTONIX [Concomitant]
     Active Substance: PANTOPRAZOLE SODIUM
     Indication: Product used for unknown indication
     Route: 048
     Dates: start: 20221115, end: 20230605
  37. PROTONIX [Concomitant]
     Active Substance: PANTOPRAZOLE SODIUM
     Route: 048
     Dates: start: 20240126
  38. MIRALAX [Concomitant]
     Active Substance: POLYETHYLENE GLYCOL 3350
     Indication: Product used for unknown indication
     Dosage: TAKE 17 G BY MOUTH DAILY MIX IN 8 OZ. OF FLUID
     Route: 048
     Dates: start: 20220715
  39. DELTASONE [Concomitant]
     Active Substance: PREDNISONE
     Indication: Contrast media allergy
     Dosage: 13 HOURS, 7 HOURS AND 1 HOUR PRIOR TO MRI SCAN
     Route: 048
     Dates: start: 20220310, end: 20240318
  40. HYDROCIL INSTANT [Concomitant]
     Indication: Product used for unknown indication
     Dosage: TAKE 1 PACKET BY MOUTH DAILY, MIX IN SHAKER CUP WITH AT LEAST 8 OZ. OF FLUID
     Route: 048
     Dates: start: 20220715
  41. CARAFATE [Concomitant]
     Active Substance: SUCRALFATE
     Indication: Mouth ulceration
     Dosage: 1G FOR 1 TO 2 MN AFTER ROUTINE MOUTH CARE, ALT SUS MAYBE APPL DIRECTLY ORAL ULCER USING COTTON TIP
     Route: 048
     Dates: start: 20221215
  42. KENALOG [Concomitant]
     Active Substance: TRIAMCINOLONE ACETONIDE
     Indication: Product used for unknown indication
     Dosage: APPLY TO AFFECTED AREA TWICE DAILY
     Route: 061
  43. DIOVAN [Concomitant]
     Active Substance: VALSARTAN
     Indication: Product used for unknown indication
     Route: 048
     Dates: start: 20220629, end: 20230721
  44. ZINCATE [Concomitant]
     Indication: Product used for unknown indication
     Dosage: 1 CAPSULE 50 MG ZINC (220 MG TOTAL)
     Route: 048
     Dates: start: 20220715
  45. METROGEL [Concomitant]
     Active Substance: METRONIDAZOLE
     Indication: Product used for unknown indication
     Dosage: APPLY PEA SIZED AMOUNT TO FULL FACE ONCE DAILY
     Route: 061
     Dates: start: 20230107
  46. PROVENTIL [Concomitant]
     Active Substance: ALBUTEROL
     Indication: Wheezing
     Dosage: INHALE 180 MCG (2 PUFFS TOTAL) IN LUNGS EVERY 6 HOURS AS NEEDED
     Route: 055
     Dates: start: 20190823
  47. VENTOLIN HFA [Concomitant]
     Active Substance: ALBUTEROL SULFATE
     Indication: Wheezing
     Dosage: INHALE 180 MCG (2 PUFFS TOTAL) IN LUNGS EVERY 6 HOURS AS NEEDED
     Route: 055
     Dates: start: 20190823
  48. HEMA PLEX [Concomitant]
     Indication: Product used for unknown indication
  49. LIPITOR [Concomitant]
     Active Substance: ATORVASTATIN CALCIUM
     Indication: Product used for unknown indication
     Route: 048
     Dates: start: 20230826, end: 20240318
  50. LINACLOTIDE [Concomitant]
     Active Substance: LINACLOTIDE
     Indication: Product used for unknown indication
     Dosage: TAKE 30 MINUTES BEFORE 1ST MEAL OF THE DAY.
     Route: 048
     Dates: start: 20240229, end: 20240318
  51. DIOVAN HCT [Concomitant]
     Active Substance: HYDROCHLOROTHIAZIDE\VALSARTAN
     Indication: Product used for unknown indication
     Dosage: 80-12.5 MG, IN THE MORNING
     Route: 048
     Dates: start: 20240202

REACTIONS (10)
  - Pancreatic disorder [Unknown]
  - Ammonia abnormal [Unknown]
  - Gastrointestinal disorder [Unknown]
  - Brain fog [Unknown]
  - Abdominal distension [Unknown]
  - Feeding disorder [Unknown]
  - Infection [Unknown]
  - Therapy interrupted [Unknown]
  - Insurance issue [Unknown]
  - Inability to afford medication [Unknown]

NARRATIVE: CASE EVENT DATE: 20240105
